FAERS Safety Report 9981342 (Version 1)
Quarter: 2014Q1

REPORT INFORMATION
  Report Type: Spontaneous
  Country: GR (occurrence: GR)
  Receive Date: 20140307
  Receipt Date: 20140307
  Transmission Date: 20141002
  Serious: Yes (Death, Life-Threatening, Other)
  Sender: FDA-Public Use
  Company Number: GR-CELGENEUS-066-22393-14023439

PATIENT
  Sex: Male

DRUGS (2)
  1. ISTODAX [Suspect]
     Indication: MYCOSIS FUNGOIDES
     Route: 065
  2. METHOTREXATE [Concomitant]
     Indication: MYCOSIS FUNGOIDES
     Route: 065

REACTIONS (3)
  - Respiratory failure [Fatal]
  - Leukopenia [Fatal]
  - Respiratory tract infection [Fatal]
